FAERS Safety Report 16133929 (Version 1)
Quarter: 2019Q1

REPORT INFORMATION
  Report Type: Other
  Country: None (occurrence: CN)
  Receive Date: 20190329
  Receipt Date: 20190329
  Transmission Date: 20190418
  Serious: Yes (Hospitalization)
  Sender: FDA-Public Use
  Company Number: CN-LEADING PHARMA, LLC-2064899

PATIENT

DRUGS (1)
  1. FOLIC ACID. [Suspect]
     Active Substance: FOLIC ACID

REACTIONS (1)
  - Leukopenia [None]
